FAERS Safety Report 14132231 (Version 3)
Quarter: 2018Q1

REPORT INFORMATION
  Report Type: Report from Study
  Country: US (occurrence: US)
  Receive Date: 20171026
  Receipt Date: 20180123
  Transmission Date: 20180508
  Serious: No
  Sender: FDA-Public Use
  Company Number: US-AMGEN-USASL2017122309

PATIENT
  Sex: Female

DRUGS (1)
  1. REPATHA [Suspect]
     Active Substance: EVOLOCUMAB
     Indication: TYPE IIA HYPERLIPIDAEMIA
     Dosage: UNK
     Route: 065

REACTIONS (6)
  - Back pain [Unknown]
  - Chills [Unknown]
  - Nasopharyngitis [Unknown]
  - Drug dose omission [Unknown]
  - Pyrexia [Unknown]
  - Bronchial disorder [Unknown]
